FAERS Safety Report 8925208 (Version 3)
Quarter: 2013Q4

REPORT INFORMATION
  Report Type: Spontaneous
  Country: US (occurrence: US)
  Receive Date: 20121126
  Receipt Date: 20131219
  Transmission Date: 20140711
  Serious: Yes (Hospitalization, Other)
  Sender: FDA-Public Use
  Company Number: US-BAYER-2012-121499

PATIENT
  Age: 25 Year
  Sex: Female
  Weight: 52.15 kg

DRUGS (3)
  1. YAZ [Suspect]
     Dosage: UNK
     Dates: start: 2006, end: 200612
  2. PERCOCET [Concomitant]
  3. DARVOCET [Concomitant]

REACTIONS (7)
  - Cholecystectomy [None]
  - Emotional distress [None]
  - Injury [None]
  - Pain [None]
  - Anxiety [None]
  - Psychological trauma [None]
  - Cholelithiasis [None]
